FAERS Safety Report 8019774-6 (Version None)
Quarter: 2012Q1

REPORT INFORMATION
  Report Type: 
  Country: None (occurrence: None)
  Receive Date: 20120103
  Receipt Date: 20111229
  Transmission Date: 20120608
  Serious: No
  Sender: FDA-Public Use
  Company Number: US-PFIZER INC-2011316539

PATIENT
  Sex: Female
  Weight: 68 kg

DRUGS (1)
  1. ADVIL CONGESTION RELIEF [Suspect]
     Indication: SINUS CONGESTION
     Dosage: 200/10 MG, 3X/DAY
     Route: 048
     Dates: start: 20111227, end: 20111229

REACTIONS (1)
  - DRUG INEFFECTIVE [None]
